FAERS Safety Report 26120960 (Version 1)
Quarter: 2025Q4

REPORT INFORMATION
  Report Type: Spontaneous
  Country: JP (occurrence: JP)
  Receive Date: 20251204
  Receipt Date: 20251204
  Transmission Date: 20260118
  Serious: Yes (Hospitalization)
  Sender: CHEPLAPHARM
  Company Number: JP-CP_KK-2025JP005448

PATIENT
  Age: 4 Decade
  Sex: Male

DRUGS (2)
  1. OLANZAPINE [Suspect]
     Active Substance: OLANZAPINE
     Indication: Schizophrenia
     Dosage: UNK
  2. FLUNITRAZEPAM [Suspect]
     Active Substance: FLUNITRAZEPAM
     Indication: Schizophrenia

REACTIONS (3)
  - Bladder diverticulum [Unknown]
  - Urinary retention [Not Recovered/Not Resolved]
  - Deep vein thrombosis [Recovered/Resolved]
